FAERS Safety Report 6114960-4 (Version None)
Quarter: 2009Q1

REPORT INFORMATION
  Report Type: 
  Country: None (occurrence: None)
  Receive Date: 20090313
  Receipt Date: 20090311
  Transmission Date: 20090719
  Serious: Yes (Hospitalization)
  Sender: FDA-Public Use
  Company Number: 10127686

PATIENT
  Age: 64 Year
  Sex: Female

DRUGS (11)
  1. TAXOL [Suspect]
     Indication: BREAST CANCER METASTATIC
     Route: 042
     Dates: start: 19990921, end: 19990921
  2. COUMADIN [Interacting]
  3. HERCEPTIN [Concomitant]
     Indication: BREAST CANCER METASTATIC
     Route: 042
     Dates: start: 19990921, end: 19990921
  4. OXYCODONE HCL [Concomitant]
     Dosage: DOSE RANGE 5-10 MILLIGRAMS TAKEN AS NEEDED
     Route: 048
  5. OXYCONTIN [Concomitant]
     Route: 048
  6. SEREVENT [Concomitant]
     Route: 048
  7. AZMACORT [Concomitant]
     Route: 048
  8. ZANTAC [Concomitant]
     Dosage: TAKEN AT BEDTIME
     Route: 048
  9. SYNTHROID [Concomitant]
     Route: 048
  10. REGLAN [Concomitant]
     Dosage: TAKEN THREE TIMES A DAY AS NEEDED
     Route: 048
  11. SENOKOT [Concomitant]
     Dosage: TAKEN ON AN AS NEEDED BASIS
     Route: 048

REACTIONS (2)
  - DRUG INTERACTION [None]
  - HAEMORRHAGE [None]
